FAERS Safety Report 24315152 (Version 3)
Quarter: 2024Q3

REPORT INFORMATION
  Report Type: Spontaneous
  Country: EC (occurrence: EC)
  Receive Date: 20240913
  Receipt Date: 20240927
  Transmission Date: 20241016
  Serious: Yes (Disabling, Other)
  Sender: ROCHE
  Company Number: EC-ROCHE-10000076150

PATIENT

DRUGS (1)
  1. AVASTIN [Suspect]
     Active Substance: BEVACIZUMAB
     Indication: Retinopathy
     Dosage: 3 SESSIONS OF APPLICATIONS
     Route: 031

REACTIONS (5)
  - Off label use [Unknown]
  - Blindness [Unknown]
  - Endophthalmitis [Unknown]
  - Pain [Unknown]
  - Product contamination [Unknown]
